FAERS Safety Report 21021712 (Version 1)
Quarter: 2022Q2

REPORT INFORMATION
  Report Type: Spontaneous
  Country: JP (occurrence: JP)
  Receive Date: 20220629
  Receipt Date: 20220629
  Transmission Date: 20220721
  Serious: Yes (Life-Threatening, Other)
  Sender: FDA-Public Use
  Company Number: JP-NATCOUSA-2022-NATCOUSA-000051

PATIENT
  Sex: Female

DRUGS (1)
  1. LETROZOLE [Suspect]
     Active Substance: LETROZOLE
     Indication: Invasive lobular breast carcinoma

REACTIONS (3)
  - Invasive lobular breast carcinoma [Unknown]
  - Disease progression [Unknown]
  - Metastases to bone [Unknown]
